FAERS Safety Report 5113737-6 (Version None)
Quarter: 2006Q3

REPORT INFORMATION
  Report Type: 
  Country: None (occurrence: None)
  Receive Date: 20060921
  Receipt Date: 20060914
  Transmission Date: 20061208
  Serious: Yes (Other)
  Sender: FDA-Public Use
  Company Number: US-2006-001853

PATIENT
  Age: 55 Year
  Sex: Female
  Weight: 71.2 kg

DRUGS (4)
  1. CLIMARA [Suspect]
     Indication: MENOPAUSAL SYMPTOMS
     Dosage: 0.05 MG/D, CONT, TRANSDERMAL
     Route: 062
     Dates: start: 19960624, end: 19970717
  2. ESTRADERM [Suspect]
     Indication: MENOPAUSAL SYMPTOMS
     Dosage: 0.5 MG, CONT, TRANSDERMAL
     Route: 062
     Dates: start: 19910502, end: 19960624
  3. PROVERA [Suspect]
     Indication: MENOPAUSAL SYMPTOMS
     Dosage: 2.5 MG
     Dates: start: 19910710, end: 19970717
  4. PREMPRO [Suspect]
     Indication: MENOPAUSAL SYMPTOMS
     Dates: start: 19970717, end: 19990801

REACTIONS (16)
  - ANXIETY [None]
  - APPLICATION SITE IRRITATION [None]
  - ATRIAL FIBRILLATION [None]
  - BREAST CANCER FEMALE [None]
  - BREAST CANCER IN SITU [None]
  - CARDIAC VALVE DISEASE [None]
  - DEPRESSION [None]
  - DYSPNOEA [None]
  - EJECTION FRACTION DECREASED [None]
  - HEART INJURY [None]
  - INSOMNIA [None]
  - LUNG ADENOCARCINOMA [None]
  - LYMPHOEDEMA [None]
  - OESTROGEN RECEPTOR ASSAY POSITIVE [None]
  - PROGESTERONE RECEPTOR ASSAY POSITIVE [None]
  - SCAR [None]
